FAERS Safety Report 4782740-8 (Version None)
Quarter: 2005Q3

REPORT INFORMATION
  Report Type: 
  Country: None (occurrence: None)
  Receive Date: 20050929
  Receipt Date: 20050913
  Transmission Date: 20060218
  Serious: No
  Sender: FDA-Public Use
  Company Number: US-GLAXOSMITHKLINE-A0574045A

PATIENT
  Age: 80 Year
  Sex: Male

DRUGS (17)
  1. COREG [Suspect]
     Dosage: 6.25MG PER DAY
     Route: 048
  2. ASCORBIC ACID [Concomitant]
  3. ASPIRIN [Concomitant]
  4. CAPTOPRIL [Concomitant]
  5. ATIVAN [Concomitant]
  6. DOCUSATE SODIUM [Concomitant]
  7. COUMADIN [Concomitant]
  8. IBUPROFEN [Concomitant]
  9. LOVASTATIN [Concomitant]
  10. MULTI-VITAMINS [Concomitant]
  11. NITROGLYCERIN [Concomitant]
  12. TYLENOL PM [Concomitant]
  13. SOTALOL HCL [Concomitant]
  14. PLAVIX [Concomitant]
  15. VITAMIN B6 [Concomitant]
  16. FOLIC ACID [Concomitant]
  17. OMEPRAZOLE [Concomitant]

REACTIONS (1)
  - SKIN DISCOLOURATION [None]
